FAERS Safety Report 9234217 (Version 2)
Quarter: 2013Q3

REPORT INFORMATION
  Report Type: Report from Study
  Country: BR (occurrence: BR)
  Receive Date: 20130416
  Receipt Date: 20130819
  Transmission Date: 20140515
  Serious: Yes (Other)
  Sender: FDA-Public Use
  Company Number: PHHY2013BR035966

PATIENT
  Sex: Female

DRUGS (2)
  1. DIOVAN AMLO FIX [Suspect]
     Indication: BLOOD PRESSURE ABNORMAL
     Dosage: 1 DF QD (320 MG VALS AND 5 MG AMLO)
     Dates: end: 20130409
  2. ATENOLOL [Suspect]
     Indication: BLOOD PRESSURE ABNORMAL
     Dosage: 25 MG, UNK

REACTIONS (4)
  - Diabetes mellitus [Unknown]
  - Visual acuity reduced [Unknown]
  - Visual impairment [Unknown]
  - Hypertension [Unknown]
